FAERS Safety Report 16031790 (Version 1)
Quarter: 2019Q1

REPORT INFORMATION
  Report Type: Report from Study
  Country: CA (occurrence: CA)
  Receive Date: 20190304
  Receipt Date: 20190304
  Transmission Date: 20190418
  Serious: Yes (Hospitalization)
  Sender: FDA-Public Use
  Company Number: CA-ACTELION-A-NJ2018-184021

PATIENT
  Sex: Female
  Weight: 89.1 kg

DRUGS (17)
  1. DOMPERIDONE [Concomitant]
     Active Substance: DOMPERIDONE
  2. MAGNESIUM [Concomitant]
     Active Substance: MAGNESIUM
  3. AMLODIPINE [Concomitant]
     Active Substance: AMLODIPINE BESYLATE
  4. ASA [Concomitant]
     Active Substance: ASPIRIN
     Dosage: 81 MG, UNK
  5. TYLENOL EXTRA STRENGTH [Concomitant]
     Active Substance: ACETAMINOPHEN
  6. SILDENAFIL. [Concomitant]
     Active Substance: SILDENAFIL
  7. T3 [Concomitant]
     Active Substance: LIOTHYRONINE SODIUM
  8. BOSENTAN. [Concomitant]
     Active Substance: BOSENTAN
  9. LORAZEPAM. [Concomitant]
     Active Substance: LORAZEPAM
  10. CALCIUM W/COLECALCIFEROL [Concomitant]
     Active Substance: CALCIUM\CHOLECALCIFEROL
  11. UPTRAVI [Suspect]
     Active Substance: SELEXIPAG
     Indication: PULMONARY ARTERIAL HYPERTENSION
     Dosage: 400 MCG, UNK
     Route: 048
     Dates: start: 20181203
  12. UPTRAVI [Suspect]
     Active Substance: SELEXIPAG
     Dosage: 800 UNK
     Route: 048
  13. OMEPRAZOLE. [Concomitant]
     Active Substance: OMEPRAZOLE
  14. ATORVASTATIN [Concomitant]
     Active Substance: ATORVASTATIN
  15. VITAMIN D3 [Concomitant]
     Active Substance: CHOLECALCIFEROL
  16. LOSARTAN. [Concomitant]
     Active Substance: LOSARTAN
  17. FUROSEMIDE. [Concomitant]
     Active Substance: FUROSEMIDE

REACTIONS (4)
  - Gait disturbance [Not Recovered/Not Resolved]
  - Impaired healing [Unknown]
  - Pain in extremity [Not Recovered/Not Resolved]
  - Leg amputation [Unknown]
